FAERS Safety Report 5765942-3 (Version None)
Quarter: 2008Q2

REPORT INFORMATION
  Report Type: 
  Country: None (occurrence: None)
  Receive Date: 20080611
  Receipt Date: 20071019
  Transmission Date: 20081010
  Serious: No
  Sender: FDA-Public Use
  Company Number: US-BRISTOL-MYERS SQUIBB COMPANY-13950936

PATIENT
  Age: 85 Year
  Sex: Male

DRUGS (5)
  1. CARBIDOPA + LEVODOPA [Suspect]
     Indication: PARKINSON'S DISEASE
     Dosage: DOSAGE FORM=TABLET
     Route: 048
     Dates: start: 20030101
  2. ATENOLOL [Concomitant]
  3. LOSARTAN POTASSIUM [Concomitant]
  4. HYDROCHLOROTHIAZIDE [Concomitant]
  5. COENZYME Q10 [Concomitant]

REACTIONS (1)
  - LIP DISORDER [None]
